FAERS Safety Report 4453340-4 (Version None)
Quarter: 2004Q3

REPORT INFORMATION
  Report Type: 
  Country: None (occurrence: None)
  Receive Date: 20040920
  Receipt Date: 20040727
  Transmission Date: 20050211
  Serious: Yes (Other)
  Sender: FDA-Public Use
  Company Number: PHFR2004GB02985

PATIENT
  Age: 6 Year
  Sex: Male

DRUGS (1)
  1. RITALIN [Suspect]
     Dosage: 5 MG, BID
     Route: 065

REACTIONS (2)
  - ASTHMA [None]
  - CONDITION AGGRAVATED [None]
